FAERS Safety Report 13668120 (Version 1)
Quarter: 2017Q2

REPORT INFORMATION
  Report Type: Spontaneous
  Country: US (occurrence: US)
  Receive Date: 20170620
  Receipt Date: 20170620
  Transmission Date: 20170830
  Serious: No
  Sender: FDA-Public Use
  Company Number: US-PFIZER INC-2017265425

PATIENT
  Age: 54 Year
  Sex: Female

DRUGS (3)
  1. METOPROLOL TARTRATE. [Concomitant]
     Active Substance: METOPROLOL TARTRATE
     Dosage: 50 MG, UNK
  2. FOLIC ACID. [Concomitant]
     Active Substance: FOLIC ACID
     Dosage: 1 MG, UNK
  3. SUTENT [Suspect]
     Active Substance: SUNITINIB MALATE
     Indication: THYROID CANCER
     Dosage: 37.5 MG, CYCLIC (TAKE 1 CAPSULE BY MOUTH EVERY DAY FOR 1 WEEK ON AND 1 WEEK OFF)
     Route: 048
     Dates: start: 201408, end: 201705

REACTIONS (2)
  - Neoplasm progression [Not Recovered/Not Resolved]
  - Product use in unapproved indication [Unknown]
